FAERS Safety Report 9003693 (Version 1)
Quarter: 2013Q1

REPORT INFORMATION
  Report Type: Spontaneous
  Country: US (occurrence: US)
  Receive Date: 20130108
  Receipt Date: 20130108
  Transmission Date: 20140127
  Serious: No
  Sender: FDA-Public Use
  Company Number: US-GLAXOSMITHKLINE-A0962436A

PATIENT
  Age: 38 Year
  Sex: Female

DRUGS (5)
  1. LOVAZA [Suspect]
     Indication: BLOOD CHOLESTEROL
     Dosage: 2CAP TWICE PER DAY
     Route: 048
     Dates: start: 201110
  2. SIMVASTATIN [Concomitant]
  3. TRILIPIX [Concomitant]
  4. METFORMIN [Concomitant]
  5. VITAMIN D [Concomitant]

REACTIONS (1)
  - Medication residue present [Not Recovered/Not Resolved]
